FAERS Safety Report 24865451 (Version 1)
Quarter: 2025Q1

REPORT INFORMATION
  Report Type: Spontaneous
  Country: US (occurrence: US)
  Receive Date: 20250121
  Receipt Date: 20250121
  Transmission Date: 20250408
  Serious: Yes (Other)
  Sender: BOEHRINGER INGELHEIM
  Company Number: US-Komodo Health-a23aa000005Dh13AAC

PATIENT
  Sex: Female

DRUGS (1)
  1. MIRAPEX [Suspect]
     Active Substance: PRAMIPEXOLE DIHYDROCHLORIDE
     Indication: Restless legs syndrome

REACTIONS (11)
  - Cardiac failure congestive [Unknown]
  - Renal failure [Unknown]
  - Gambling disorder [Unknown]
  - Hallucination [Unknown]
  - Abnormal dreams [Unknown]
  - Insomnia [Unknown]
  - Urticaria [Unknown]
  - Dry mouth [Unknown]
  - Nausea [Unknown]
  - Obsessive-compulsive disorder [Unknown]
  - Amnesia [Unknown]

NARRATIVE: CASE EVENT DATE: 20240501
